FAERS Safety Report 8788527 (Version 1)
Quarter: 2012Q4

REPORT INFORMATION
  Report Type: 
  Country: US (occurrence: US)
  Receive Date: 20120914
  Receipt Date: 20120914
  Transmission Date: 20130627
  Serious: No
  Sender: FDA-Public Use
  Company Number: US-VERTEX PHARMACEUTICAL INC.-AE-2012-011584

PATIENT

DRUGS (5)
  1. VX-950 [Suspect]
     Indication: HEPATITIS C
     Dosage: 2 DF, tid
     Route: 048
     Dates: start: 20120719
  2. RIBAPAK [Concomitant]
     Indication: HEPATITIS C
     Dosage: 1000 mg, bid
     Route: 048
     Dates: start: 20120719
  3. PEGASYS [Concomitant]
     Indication: HEPATITIS C
     Dosage: 180 ?g, weekly
     Route: 058
     Dates: start: 20120719
  4. VILAZODONE HCL [Concomitant]
     Indication: DEPRESSION
     Route: 048
     Dates: start: 20120724
  5. MIRALAX [Suspect]

REACTIONS (13)
  - Inappropriate schedule of drug administration [Recovered/Resolved]
  - Blood pressure abnormal [Recovered/Resolved]
  - Heart rate irregular [Recovered/Resolved]
  - Dyspnoea [Not Recovered/Not Resolved]
  - Liver function test abnormal [Unknown]
  - Faeces pale [Not Recovered/Not Resolved]
  - Alopecia [Not Recovered/Not Resolved]
  - Somnolence [Unknown]
  - Constipation [Not Recovered/Not Resolved]
  - Nasal discomfort [Recovered/Resolved]
  - Fatigue [Not Recovered/Not Resolved]
  - Pruritus [Recovered/Resolved]
  - Proctalgia [Not Recovered/Not Resolved]
